FAERS Safety Report 23647603 (Version 1)
Quarter: 2024Q1

REPORT INFORMATION
  Report Type: Spontaneous
  Country: SE (occurrence: SE)
  Receive Date: 20240319
  Receipt Date: 20240319
  Transmission Date: 20240410
  Serious: Yes (Hospitalization)
  Sender: FDA-Public Use
  Company Number: SE-PFIZER INC-2009252183

PATIENT
  Age: 26 Year
  Sex: Male

DRUGS (2)
  1. LYRICA [Suspect]
     Active Substance: PREGABALIN
     Indication: Anxiety
     Dosage: 2.4 GRAM
     Route: 048
     Dates: start: 2007
  2. LYRICA [Suspect]
     Active Substance: PREGABALIN
     Dosage: 2400 MG, 1X/DAY REGIMEN DOSE UNIT: MILLIGRAM
     Route: 048
     Dates: start: 200810, end: 200906

REACTIONS (1)
  - Dependence [Not Recovered/Not Resolved]

NARRATIVE: CASE EVENT DATE: 20081001
